FAERS Safety Report 18208397 (Version 8)
Quarter: 2021Q1

REPORT INFORMATION
  Report Type: Report from Study
  Country: CL (occurrence: CL)
  Receive Date: 20200828
  Receipt Date: 20210108
  Transmission Date: 20210419
  Serious: Yes (Hospitalization)
  Sender: FDA-Public Use
  Company Number: CL-JNJFOC-20200627671

PATIENT
  Age: 59 Year
  Sex: Female

DRUGS (3)
  1. SIMPONI [Suspect]
     Active Substance: GOLIMUMAB
     Indication: RHEUMATOID ARTHRITIS
     Dosage: 50.00 MG / 0.50 ML
     Route: 058
     Dates: start: 20200313, end: 20200613
  2. SIMPONI [Suspect]
     Active Substance: GOLIMUMAB
     Route: 058
     Dates: start: 20200313, end: 20200613
  3. SIMPONI [Suspect]
     Active Substance: GOLIMUMAB
     Route: 058
     Dates: start: 20200313, end: 20200613

REACTIONS (5)
  - Drug ineffective [Not Recovered/Not Resolved]
  - Urinary tract infection [Unknown]
  - Inflammatory pain [Not Recovered/Not Resolved]
  - Thrombosis [Unknown]
  - Arthritis [Unknown]

NARRATIVE: CASE EVENT DATE: 202003
